FAERS Safety Report 25383463 (Version 2)
Quarter: 2025Q2

REPORT INFORMATION
  Report Type: Spontaneous
  Country: CN (occurrence: CN)
  Receive Date: 20250602
  Receipt Date: 20250609
  Transmission Date: 20250717
  Serious: Yes (Other)
  Sender: ALKEM
  Company Number: CN-ALKEM LABORATORIES LIMITED-CN-ALKEM-2025-05360

PATIENT
  Age: 12 Year
  Sex: Male
  Weight: 62 kg

DRUGS (1)
  1. CARBAMAZEPINE [Suspect]
     Active Substance: CARBAMAZEPINE
     Indication: Depression
     Dosage: 800 MILLIGRAM, QD (IN DIVIDED DOSES FOR THE PAST YEAR)
     Route: 048

REACTIONS (3)
  - Osteonecrosis [Not Recovered/Not Resolved]
  - Peripheral nerve injury [Not Recovered/Not Resolved]
  - Anticonvulsant drug level increased [Unknown]
